FAERS Safety Report 10504092 (Version 1)
Quarter: 2014Q4

REPORT INFORMATION
  Report Type: Spontaneous
  Country: US (occurrence: None)
  Receive Date: 20141007
  Receipt Date: 20141007
  Transmission Date: 20150528
  Serious: Yes (Hospitalization)
  Sender: FDA-Public Use
  Company Number: None

PATIENT
  Age: 27 Year
  Sex: Female

DRUGS (1)
  1. ULTRAVIST [Suspect]
     Active Substance: IOPROMIDE
     Indication: SCAN WITH CONTRAST
     Route: 042

REACTIONS (6)
  - Eye pruritus [None]
  - Eyelid oedema [None]
  - Nausea [None]
  - Throat irritation [None]
  - Pain [None]
  - Vision blurred [None]

NARRATIVE: CASE EVENT DATE: 20140926
